FAERS Safety Report 8200714-1 (Version None)
Quarter: 2012Q1

REPORT INFORMATION
  Report Type: 
  Country: None (occurrence: None)
  Receive Date: 20120227
  Receipt Date: 20120215
  Transmission Date: 20120608
  Serious: Yes (Other)
  Sender: FDA-Public Use
  Company Number: 2012031178

PATIENT
  Age: 64 Year
  Sex: Female
  Weight: 71.2147 kg

DRUGS (22)
  1. HIZENTRA [Suspect]
     Indication: IMMUNODEFICIENCY COMMON VARIABLE
     Dosage: SEE IMAGE
     Route: 058
     Dates: start: 20120208, end: 20120208
  2. HIZENTRA [Suspect]
     Indication: IMMUNODEFICIENCY COMMON VARIABLE
     Dosage: SEE IMAGE
     Route: 058
     Dates: start: 20110515
  3. HIZENTRA [Suspect]
     Indication: IMMUNODEFICIENCY COMMON VARIABLE
     Dosage: SEE IMAGE
     Route: 058
     Dates: start: 20120208, end: 20120208
  4. HIZENTRA [Suspect]
  5. ASPIRIN [Concomitant]
  6. ZYRTEC [Concomitant]
  7. SIMVASTATIN [Concomitant]
  8. PROVENTIL [Concomitant]
  9. POTASSIUM CHLORIDE [Concomitant]
  10. ADVAIR DISKUS 100/50 [Concomitant]
  11. VERAMYST (FLUTICASONE) [Concomitant]
  12. ABILIFY [Concomitant]
  13. CALCIUM CARBONATE [Concomitant]
  14. VITAMIN D [Concomitant]
  15. THYROID TAB [Concomitant]
  16. SERTRALINE HYDROCHLORIDE [Concomitant]
  17. SYNTHROID [Concomitant]
  18. SPIRONOLACTONE [Concomitant]
  19. OMEPRAZOLE [Concomitant]
  20. ONE DAILY WOMENS (MULTIVITAMIN /00831701/) [Concomitant]
  21. METFORMIN HCL [Concomitant]
  22. LOVAZA [Concomitant]

REACTIONS (3)
  - URINARY TRACT INFECTION [None]
  - PAIN [None]
  - TENDERNESS [None]
